FAERS Safety Report 16226811 (Version 1)
Quarter: 2019Q2

REPORT INFORMATION
  Report Type: Spontaneous
  Country: NL (occurrence: NL)
  Receive Date: 20190423
  Receipt Date: 20190423
  Transmission Date: 20190711
  Serious: Yes (Hospitalization, Other)
  Sender: FDA-Public Use
  Company Number: NL-BAUSCH-BL-2019-011483

PATIENT
  Age: 40 Year
  Sex: Male

DRUGS (2)
  1. MESALAZINE [Suspect]
     Active Substance: MESALAMINE
     Indication: COLITIS ULCERATIVE
     Route: 065
  2. AZATHIOPRINE. [Suspect]
     Active Substance: AZATHIOPRINE
     Indication: COLITIS ULCERATIVE
     Route: 065

REACTIONS (11)
  - Pancytopenia [Recovering/Resolving]
  - Leukopenia [Recovering/Resolving]
  - Hypoxia [Recovering/Resolving]
  - Rash generalised [Unknown]
  - Anaemia [Unknown]
  - Pyrexia [Unknown]
  - Lung infiltration [Recovering/Resolving]
  - Cytomegalovirus infection [Recovered/Resolved]
  - Systemic inflammatory response syndrome [Recovering/Resolving]
  - Haemophagocytic lymphohistiocytosis [Recovering/Resolving]
  - Hypotension [Recovering/Resolving]
